FAERS Safety Report 5405620-3 (Version None)
Quarter: 2007Q3

REPORT INFORMATION
  Report Type: 
  Country: None (occurrence: None)
  Receive Date: 20070806
  Receipt Date: 20070802
  Transmission Date: 20080115
  Serious: Yes (Death)
  Sender: FDA-Public Use
  Company Number: PHBS2007JP12865

PATIENT
  Age: 63 Year
  Sex: Female

DRUGS (3)
  1. DOPACOL [Concomitant]
     Dosage: 600 MG, UNK
     Route: 048
  2. FERROMIA [Concomitant]
     Dosage: 50 MG, UNK
     Route: 048
     Dates: start: 20070706
  3. COMTADE [Suspect]
     Indication: DRUG EFFECT DECREASED
     Dosage: 300 MG/DAY
     Route: 048
     Dates: start: 20070706

REACTIONS (1)
  - CEREBRAL HAEMORRHAGE [None]
